FAERS Safety Report 25626915 (Version 2)
Quarter: 2025Q3

REPORT INFORMATION
  Report Type: Spontaneous
  Country: JP (occurrence: JP)
  Receive Date: 20250731
  Receipt Date: 20250902
  Transmission Date: 20251020
  Serious: Yes (Hospitalization)
  Sender: MYLAN
  Company Number: JP-VIATRISJAPAN-2025M1063873AA

PATIENT
  Age: 8 Decade
  Sex: Female

DRUGS (12)
  1. LYRICA [Suspect]
     Active Substance: PREGABALIN
     Indication: Sciatica
     Dosage: 50 MILLIGRAM, QD
     Dates: start: 20250402
  2. LYRICA [Suspect]
     Active Substance: PREGABALIN
     Dosage: 50 MILLIGRAM, QD
     Route: 048
     Dates: start: 20250402
  3. LYRICA [Suspect]
     Active Substance: PREGABALIN
     Dosage: 50 MILLIGRAM, QD
     Route: 048
     Dates: start: 20250402
  4. LYRICA [Suspect]
     Active Substance: PREGABALIN
     Dosage: 50 MILLIGRAM, QD
     Dates: start: 20250402
  5. ELDECALCITOL [Concomitant]
     Active Substance: ELDECALCITOL
     Indication: Product used for unknown indication
  6. ELDECALCITOL [Concomitant]
     Active Substance: ELDECALCITOL
     Route: 065
  7. ELDECALCITOL [Concomitant]
     Active Substance: ELDECALCITOL
     Route: 065
  8. ELDECALCITOL [Concomitant]
     Active Substance: ELDECALCITOL
  9. BONVIVA [Concomitant]
     Active Substance: IBANDRONATE SODIUM
     Indication: Product used for unknown indication
  10. BONVIVA [Concomitant]
     Active Substance: IBANDRONATE SODIUM
     Route: 065
  11. BONVIVA [Concomitant]
     Active Substance: IBANDRONATE SODIUM
     Route: 065
  12. BONVIVA [Concomitant]
     Active Substance: IBANDRONATE SODIUM

REACTIONS (1)
  - Hyponatraemia [Recovered/Resolved]

NARRATIVE: CASE EVENT DATE: 20250701
